FAERS Safety Report 6460127-X (Version None)
Quarter: 2009Q4

REPORT INFORMATION
  Report Type: 
  Country: None (occurrence: None)
  Receive Date: 20091129
  Receipt Date: 20091125
  Transmission Date: 20100525
  Serious: Yes (Death)
  Sender: FDA-Public Use
  Company Number: PHEH2009US15642

PATIENT
  Sex: Female
  Weight: 34.7 kg

DRUGS (1)
  1. FEMARA [Suspect]
     Indication: BREAST CANCER
     Dosage: 2.5 MG, QD
     Route: 048
     Dates: start: 20060701

REACTIONS (3)
  - LUNG CANCER METASTATIC [None]
  - PAIN [None]
  - WEIGHT DECREASED [None]
